FAERS Safety Report 18505918 (Version 2)
Quarter: 2020Q4

REPORT INFORMATION
  Report Type: Spontaneous
  Country: TH (occurrence: TH)
  Receive Date: 20201116
  Receipt Date: 20201124
  Transmission Date: 20210114
  Serious: Yes (Other)
  Sender: FDA-Public Use
  Company Number: NVSC2020TH298609

PATIENT
  Age: 41 Year
  Sex: Female

DRUGS (10)
  1. KISQALI [Suspect]
     Active Substance: RIBOCICLIB
     Dosage: 400 MG, QD
     Route: 065
  2. LETROZOLE. [Suspect]
     Active Substance: LETROZOLE
     Dosage: 2.5 MG OD CYCLE 2 DAY 14 (15/6/2020)
     Route: 065
  3. KISQALI [Suspect]
     Active Substance: RIBOCICLIB
     Dosage: 400 MG, CYCLIC (AFTER 1 WEEK)
     Route: 065
  4. LETROZOLE. [Suspect]
     Active Substance: LETROZOLE
     Dosage: 2.5 MG OD (AFTER 1 WEEK)
     Route: 065
  5. LETROZOLE. [Suspect]
     Active Substance: LETROZOLE
     Dosage: 2.5 MG, CYCLIC (CYCLE 3 (6/7/2020))
     Route: 065
  6. LETROZOLE. [Suspect]
     Active Substance: LETROZOLE
     Dosage: 2.5 MG, CYCLIC (AFTER 1 WEEK)
     Route: 065
  7. KISQALI [Suspect]
     Active Substance: RIBOCICLIB
     Dosage: 400 MG, CYCLIC CYCLE 3 (6/7/2020)
     Route: 065
  8. LETROZOLE. [Suspect]
     Active Substance: LETROZOLE
     Indication: BREAST CANCER
     Dosage: 2.5 MG
     Route: 065
     Dates: start: 20200427
  9. KISQALI [Suspect]
     Active Substance: RIBOCICLIB
     Dosage: 400 MG, CYCLIC (CYCLE 2 DAY 14 (15/6/2020))
     Route: 065
  10. KISQALI [Suspect]
     Active Substance: RIBOCICLIB
     Indication: BREAST CANCER
     Dosage: 200 MG (3 TABS ONCE DAILY)
     Route: 065
     Dates: start: 20200427

REACTIONS (9)
  - Diarrhoea [Unknown]
  - Neutropenia [Unknown]
  - White blood cell count decreased [Unknown]
  - Carbohydrate antigen 15-3 increased [Unknown]
  - Blood albumin increased [Unknown]
  - Neutrophil count decreased [Unknown]
  - Carcinoembryonic antigen increased [Unknown]
  - Electrocardiogram QT prolonged [Unknown]
  - Blood chloride increased [Unknown]
